FAERS Safety Report 12225659 (Version 1)
Quarter: 2016Q1

REPORT INFORMATION
  Report Type: Spontaneous
  Country: US (occurrence: US)
  Receive Date: 20160331
  Receipt Date: 20160331
  Transmission Date: 20160526
  Serious: No
  Sender: FDA-Public Use
  Company Number: US-HORIZON-PEN-0130-2016

PATIENT
  Sex: Female

DRUGS (5)
  1. TIZANIDINE. [Concomitant]
     Active Substance: TIZANIDINE
  2. TRAMADOL. [Concomitant]
     Active Substance: TRAMADOL
  3. NAPROXEN. [Concomitant]
     Active Substance: NAPROXEN
  4. LYRICA [Concomitant]
     Active Substance: PREGABALIN
  5. PENNSAID [Suspect]
     Active Substance: DICLOFENAC SODIUM
     Indication: NECK PAIN
     Dosage: 2 PUMPS BID
     Route: 061

REACTIONS (1)
  - Off label use [Unknown]

NARRATIVE: CASE EVENT DATE: 201601
